FAERS Safety Report 5796186-7 (Version None)
Quarter: 2008Q3

REPORT INFORMATION
  Report Type: 
  Country: None (occurrence: None)
  Receive Date: 20080701
  Receipt Date: 20080617
  Transmission Date: 20090109
  Serious: Yes (Death, Other)
  Sender: FDA-Public Use
  Company Number: IT-ELI_LILLY_AND_COMPANY-IT200806004606

PATIENT
  Age: 67 Year
  Sex: Male

DRUGS (5)
  1. GEMCITABINE HCL [Suspect]
     Indication: LUNG NEOPLASM MALIGNANT
     Dosage: UNK, UNKNOWN
  2. CISPLATIN [Concomitant]
     Indication: LUNG NEOPLASM MALIGNANT
     Dosage: UNK, UNKNOWN
  3. ZOLEDRONIC ACID [Concomitant]
     Indication: LUNG NEOPLASM MALIGNANT
     Dosage: UNK, UNKNOWN
  4. CORTISONE ACETATE [Concomitant]
     Indication: ADRENAL INSUFFICIENCY
     Dosage: UNK, UNKNOWN
     Dates: start: 20050201
  5. DEXAMETHASONE [Concomitant]
     Indication: ADRENAL INSUFFICIENCY
     Dosage: UNK, UNKNOWN
     Dates: start: 20050201

REACTIONS (2)
  - MALIGNANT NEOPLASM PROGRESSION [None]
  - STRONGYLOIDIASIS [None]
